FAERS Safety Report 5000050-0 (Version None)
Quarter: 2006Q2

REPORT INFORMATION
  Report Type: 
  Country: None (occurrence: None)
  Receive Date: 20060501
  Receipt Date: 20060420
  Transmission Date: 20061013
  Serious: Yes (Other)
  Sender: FDA-Public Use
  Company Number: 2006054128

PATIENT
  Sex: Female

DRUGS (1)
  1. PHENYTOIN [Suspect]
     Indication: NERVOUS SYSTEM DISORDER
     Dates: start: 19860101

REACTIONS (3)
  - BALANCE DISORDER [None]
  - MOUTH ULCERATION [None]
  - TOOTH LOSS [None]
